FAERS Safety Report 13531729 (Version 1)
Quarter: 2017Q2

REPORT INFORMATION
  Report Type: Spontaneous
  Country: US (occurrence: US)
  Receive Date: 20170510
  Receipt Date: 20170510
  Transmission Date: 20170830
  Serious: Yes (Other)
  Sender: FDA-Public Use
  Company Number: None

PATIENT
  Age: 40 Year
  Sex: Male
  Weight: 90 kg

DRUGS (2)
  1. NETSPOT [Suspect]
     Active Substance: DOTATATE GALLIUM GA-68
     Indication: NEUROENDOCRINE TUMOUR
     Dosage: ?          OTHER FREQUENCY:ONCE;?
     Route: 042
     Dates: start: 20170508, end: 20170508
  2. NETSPOT [Suspect]
     Active Substance: DOTATATE GALLIUM GA-68
     Indication: IMAGING PROCEDURE
     Dosage: ?          OTHER FREQUENCY:ONCE;?
     Route: 042
     Dates: start: 20170508, end: 20170508

REACTIONS (6)
  - Headache [None]
  - Tinnitus [None]
  - Nausea [None]
  - Paraesthesia oral [None]
  - Sneezing [None]
  - Anaphylactic reaction [None]

NARRATIVE: CASE EVENT DATE: 20170508
